FAERS Safety Report 10147179 (Version 1)
Quarter: 2014Q2

REPORT INFORMATION
  Report Type: Spontaneous
  Country: US (occurrence: US)
  Receive Date: 20140501
  Receipt Date: 20140501
  Transmission Date: 20141212
  Serious: Yes (Other)
  Sender: FDA-Public Use
  Company Number: CHPA2014US005482

PATIENT
  Age: 89 Year
  Sex: Female

DRUGS (2)
  1. VOLTAREN GEL [Suspect]
     Route: 061
  2. XARELTO [Concomitant]

REACTIONS (2)
  - Blood pressure abnormal [Unknown]
  - Inappropriate schedule of drug administration [Unknown]
